FAERS Safety Report 6671922 (Version 3)
Quarter: 2014Q1

REPORT INFORMATION
  Report Type: Spontaneous
  Country: US (occurrence: US)
  Receive Date: 20080619
  Receipt Date: 20140317
  Transmission Date: 20141002
  Serious: Yes (Other)
  Sender: FDA-Public Use
  Company Number: US-BAYER-200825496NA

PATIENT
  Age: 23 Year
  Sex: Female
  Weight: 86.36 kg

DRUGS (1)
  1. MIRENA [Suspect]
     Indication: CONTRACEPTION
     Dosage: 20 MCG/24HR, CONT
     Route: 015
     Dates: start: 20080505, end: 20080506

REACTIONS (6)
  - Uterine perforation [None]
  - Procedural pain [Recovered/Resolved]
  - Vaginal haemorrhage [None]
  - Injury [None]
  - Pain [None]
  - Emotional distress [None]
